FAERS Safety Report 13064189 (Version 2)
Quarter: 2017Q1

REPORT INFORMATION
  Report Type: Report from Study
  Country: DE (occurrence: DE)
  Receive Date: 20161227
  Receipt Date: 20170130
  Transmission Date: 20170428
  Serious: Yes (Hospitalization, Other)
  Sender: FDA-Public Use
  Company Number: PHHY2016DE173985

PATIENT
  Sex: Male
  Weight: 92 kg

DRUGS (2)
  1. COSENTYX [Suspect]
     Active Substance: SECUKINUMAB
     Indication: PSORIATIC ARTHROPATHY
  2. COSENTYX [Suspect]
     Active Substance: SECUKINUMAB
     Indication: PSORIASIS
     Dosage: 300 MG, UNK
     Route: 058
     Dates: start: 20151123, end: 20160714

REACTIONS (5)
  - Pain in extremity [Unknown]
  - Staphylococcal infection [Unknown]
  - Cellulitis [Recovered/Resolved]
  - Joint swelling [Unknown]
  - Device related infection [Unknown]

NARRATIVE: CASE EVENT DATE: 2016
